FAERS Safety Report 6900833-3 (Version None)
Quarter: 2010Q3

REPORT INFORMATION
  Report Type: 
  Country: None (occurrence: None)
  Receive Date: 20100803
  Receipt Date: 20100722
  Transmission Date: 20110219
  Serious: Yes (Life-Threatening, Hospitalization, Other)
  Sender: FDA-Public Use
  Company Number: JP-PFIZER INC-2008082422

PATIENT
  Age: 56 Year
  Sex: Male
  Weight: 70 kg

DRUGS (11)
  1. SUNITINIB MALATE [Suspect]
     Indication: RENAL CELL CARCINOMA
     Dosage: 25 MG, 2X/DAY
     Route: 048
     Dates: start: 20080721, end: 20081015
  2. FENTANYL [Concomitant]
     Dosage: UNK
     Route: 062
  3. HYPEN [Concomitant]
     Dosage: UNK
     Route: 048
  4. TOLEDOMIN [Concomitant]
     Dosage: UNK
     Route: 048
  5. NOVAMIN [Concomitant]
     Dosage: UNK
     Route: 048
  6. MAGNESIUM OXIDE [Concomitant]
     Dosage: UNK
     Route: 048
  7. PROLMON [Concomitant]
     Dosage: UNK
     Route: 048
  8. MIYARI BACTERIA [Concomitant]
     Route: 048
     Dates: start: 20080803
  9. ZOMETA [Concomitant]
     Dosage: UNK
     Route: 042
  10. DOGMATYL [Concomitant]
     Dosage: UNK
     Route: 048
  11. BISOLVON [Concomitant]
     Dosage: UNK
     Route: 048

REACTIONS (3)
  - CEREBRAL HAEMORRHAGE [None]
  - PLATELET COUNT DECREASED [None]
  - PNEUMONIA [None]
